FAERS Safety Report 8477888 (Version 3)
Quarter: 2012Q4

REPORT INFORMATION
  Report Type: 
  Country: US (occurrence: US)
  Receive Date: 20120327
  Receipt Date: 20120919
  Transmission Date: 20130627
  Serious: Yes (Hospitalization, Other)
  Sender: FDA-Public Use
  Company Number: US-BAXTER-2012BAX000088

PATIENT
  Age: 66 Year
  Sex: Female
  Weight: 65 kg

DRUGS (9)
  1. DIANEAL LOW CALCIUM [Suspect]
     Indication: PERITONEAL DIALYSIS
     Route: 033
  2. DIANEAL LOW CALCIUM (ULTRABAG) [Suspect]
     Indication: PERITONEAL DIALYSIS
     Route: 033
  3. LEVOXYL [Concomitant]
     Indication: THYROID DISORDER
     Route: 065
  4. ZINC [Concomitant]
     Indication: NUTRITIONAL SUPPLEMENT
     Route: 065
  5. ASPIRIN [Concomitant]
     Indication: ANTICOAGULANT THERAPY
     Route: 065
  6. CALCITRIOL [Concomitant]
     Indication: HYPERPARATHYROIDISM
     Route: 065
  7. RENVELA [Concomitant]
     Indication: HYPERPARATHYROIDISM
     Route: 065
  8. PRAVASTATIN [Concomitant]
     Indication: DRUG USE FOR UNKNOWN INDICATION
     Route: 065
  9. GABAPENTIN [Concomitant]
     Indication: DRUG USE FOR UNKNOWN INDICATION
     Route: 065

REACTIONS (4)
  - Pneumonia [Recovered/Resolved]
  - Road traffic accident [Recovered/Resolved]
  - Delirium [Unknown]
  - Amnesia [Recovering/Resolving]
